FAERS Safety Report 24427818 (Version 2)
Quarter: 2024Q4

REPORT INFORMATION
  Report Type: Spontaneous
  Country: US (occurrence: US)
  Receive Date: 20241011
  Receipt Date: 20241113
  Transmission Date: 20250114
  Serious: Yes (Other)
  Sender: BRISTOL-MYERS SQUIBB COMPANY
  Company Number: US-BRISTOL-MYERS SQUIBB COMPANY-2024-157600

PATIENT
  Age: 80 Year
  Sex: Female
  Weight: 74.84 kg

DRUGS (3)
  1. REVLIMID [Suspect]
     Active Substance: LENALIDOMIDE
     Indication: Plasma cell myeloma
     Dosage: 3 WEEKS ON, 1 WEEK OFF; ONCE DAILY FOR 21 DAYS ON AND 7 DAYS OFF
     Route: 048
  2. ACETAMINOPHEN\HYDROCODONE [Suspect]
     Active Substance: ACETAMINOPHEN\HYDROCODONE
     Indication: Product used for unknown indication
  3. PREDNISONE [Suspect]
     Active Substance: PREDNISONE
     Indication: Product used for unknown indication
     Route: 048

REACTIONS (13)
  - Bone pain [Unknown]
  - Diarrhoea haemorrhagic [Unknown]
  - Blood iron decreased [Unknown]
  - Balance disorder [Unknown]
  - Muscle spasms [Unknown]
  - Back pain [Recovered/Resolved]
  - Headache [Unknown]
  - Feeling abnormal [Recovered/Resolved]
  - Insomnia [Unknown]
  - Crying [Unknown]
  - Tremor [Unknown]
  - Anxiety [Unknown]
  - Affect lability [Unknown]

NARRATIVE: CASE EVENT DATE: 20240901
